FAERS Safety Report 11282716 (Version 2)
Quarter: 2015Q3

REPORT INFORMATION
  Report Type: Spontaneous
  Country: US (occurrence: None)
  Receive Date: 20150716
  Receipt Date: 20150724
  Transmission Date: 20151125
  Serious: Yes (Other)
  Sender: FDA-Public Use
  Company Number: CO-LA-US-2015-010

PATIENT
  Age: 84 Year
  Sex: Male
  Weight: 70.31 kg

DRUGS (5)
  1. DILTIAZEM [Suspect]
     Active Substance: DILTIAZEM
     Dosage: 3 IN 1 HOUR
  2. TERAZOSIN [Suspect]
     Active Substance: TERAZOSIN\TERAZOSIN HYDROCHLORIDE
  3. LANOXIN [Suspect]
     Active Substance: DIGOXIN
     Indication: HEART INJURY
     Route: 048
     Dates: start: 2006
  4. LANOXIN [Suspect]
     Active Substance: DIGOXIN
     Indication: ATRIAL FIBRILLATION
     Route: 048
     Dates: start: 2006
  5. LANOXIN [Suspect]
     Active Substance: DIGOXIN
     Indication: TACHYCARDIA
     Route: 048
     Dates: start: 2006

REACTIONS (10)
  - Dyskinesia [None]
  - Drug effect decreased [None]
  - Device malfunction [None]
  - Tic [None]
  - Product quality issue [None]
  - Speech disorder [None]
  - Infection [None]
  - Tachycardia [None]
  - Atrial fibrillation [None]
  - Product substitution issue [None]

NARRATIVE: CASE EVENT DATE: 201405
